FAERS Safety Report 9592454 (Version 1)
Quarter: 2013Q3

REPORT INFORMATION
  Report Type: Spontaneous
  Country: US (occurrence: None)
  Receive Date: 20130930
  Receipt Date: 20130930
  Transmission Date: 20140515
  Serious: Yes (Other)
  Sender: FDA-Public Use
  Company Number: 1000046601

PATIENT
  Age: 75 Year
  Sex: Female

DRUGS (3)
  1. LINZESS (LINACLOTIDE) (145 MICROGRAM, CAPSULES) [Suspect]
     Indication: IRRITABLE BOWEL SYNDROME
     Dosage: 145MCG (145MCG, 1 IN 1D) ORAL
     Route: 048
     Dates: start: 20130707
  2. LINZESS (LINACLOTIDE) (145 MICROGRAM, CAPSULES) [Suspect]
     Indication: CONSTIPATION
     Dosage: 145MCG (145MCG, 1 IN 1D) ORAL
     Route: 048
     Dates: start: 20130707
  3. MIRALAX [Suspect]
     Indication: CONSTIPATION
     Dosage: AS NEEDED AS NEEDED

REACTIONS (2)
  - Diarrhoea [None]
  - Somnolence [None]
